FAERS Safety Report 15351119 (Version 1)
Quarter: 2018Q3

REPORT INFORMATION
  Report Type: Spontaneous
  Country: US (occurrence: US)
  Receive Date: 20180829
  Receipt Date: 20180829
  Transmission Date: 20181010
  Serious: Yes (Other)
  Sender: FDA-Public Use
  Company Number: None

PATIENT
  Age: 78 Year
  Sex: Male
  Weight: 66.5 kg

DRUGS (1)
  1. OMNIPAQUE [Suspect]
     Active Substance: IOHEXOL
     Indication: CONTRAST MEDIA DEPOSITION
     Route: 042
     Dates: start: 20180823, end: 20180823

REACTIONS (2)
  - Contrast media allergy [None]
  - Product quality issue [None]

NARRATIVE: CASE EVENT DATE: 20180823
